FAERS Safety Report 17780624 (Version 1)
Quarter: 2020Q2

REPORT INFORMATION
  Report Type: Spontaneous
  Country: US (occurrence: US)
  Receive Date: 20200513
  Receipt Date: 20200513
  Transmission Date: 20200714
  Serious: Yes (Hospitalization)
  Sender: FDA-Public Use
  Company Number: None

PATIENT
  Age: 70 Year
  Sex: Male
  Weight: 70 kg

DRUGS (1)
  1. CEFEPIME (CEFEPIME HCL 1GM/VIL INJ) [Suspect]
     Active Substance: CEFEPIME HYDROCHLORIDE
     Indication: OSTEOMYELITIS
     Route: 042
     Dates: start: 20191212, end: 20200105

REACTIONS (8)
  - Confusional state [None]
  - Dialysis [None]
  - Toxicity to various agents [None]
  - Azotaemia [None]
  - Neurotoxicity [None]
  - Seizure [None]
  - Acute kidney injury [None]
  - Status epilepticus [None]

NARRATIVE: CASE EVENT DATE: 20200104
